FAERS Safety Report 19228464 (Version 1)
Quarter: 2021Q2

REPORT INFORMATION
  Report Type: Other
  Country: US (occurrence: US)
  Receive Date: 20210506
  Receipt Date: 20210506
  Transmission Date: 20210717
  Serious: No
  Sender: FDA-Public Use
  Company Number: US-ROCHE-2749618

PATIENT
  Age: 57 Year
  Sex: Male

DRUGS (2)
  1. PIRFENIDONE. [Suspect]
     Active Substance: PIRFENIDONE
     Indication: PULMONARY FIBROSIS
  2. PIRFENIDONE. [Suspect]
     Active Substance: PIRFENIDONE
     Indication: CYTOGENETIC ABNORMALITY
     Route: 048

REACTIONS (1)
  - Rash pruritic [Recovered/Resolved]
